FAERS Safety Report 13716409 (Version 1)
Quarter: 2017Q3

REPORT INFORMATION
  Report Type: Spontaneous
  Country: US (occurrence: US)
  Receive Date: 20170703
  Receipt Date: 20170703
  Transmission Date: 20171127
  Serious: No
  Sender: FDA-Public Use
  Company Number: None

PATIENT
  Age: 85 Year
  Sex: Male

DRUGS (1)
  1. INTRON A [Suspect]
     Active Substance: INTERFERON ALFA-2B
     Indication: MYCOSIS FUNGOIDES
     Dosage: 0.20CC 3 TIMES A WEEK SUB-Q
     Route: 058
     Dates: start: 20140307

REACTIONS (4)
  - Influenza like illness [None]
  - Hypoaesthesia [None]
  - Insomnia [None]
  - Balance disorder [None]

NARRATIVE: CASE EVENT DATE: 201703
